FAERS Safety Report 7936386-0 (Version None)
Quarter: 2011Q4

REPORT INFORMATION
  Report Type: 
  Country: None (occurrence: None)
  Receive Date: 20111121
  Receipt Date: 20111104
  Transmission Date: 20120403
  Serious: Yes (Hospitalization, Other)
  Sender: FDA-Public Use
  Company Number: FK201102631

PATIENT
  Sex: Male

DRUGS (2)
  1. LIDOCAINE [Suspect]
     Indication: PRODUCT USED FOR UNKNOWN INDICATION
     Dosage: FETUS EXPOSED IN UTERO, TRANSPLACENTAL
     Route: 064
  2. MODAFINIL [Suspect]
     Indication: NARCOLEPSY
     Dosage: 200 MG, 1 IN 1 D, ORAL
     Route: 048

REACTIONS (3)
  - CONVULSION NEONATAL [None]
  - EAR INFECTION [None]
  - MATERNAL DRUGS AFFECTING FOETUS [None]
